FAERS Safety Report 14258682 (Version 5)
Quarter: 2018Q1

REPORT INFORMATION
  Report Type: Spontaneous
  Country: JP (occurrence: JP)
  Receive Date: 20171207
  Receipt Date: 20180210
  Transmission Date: 20180508
  Serious: Yes (Life-Threatening, Hospitalization, Other)
  Sender: FDA-Public Use
  Company Number: JP-AMGEN-JPNSP2017181712

PATIENT
  Age: 83 Year
  Sex: Male
  Weight: 51 kg

DRUGS (10)
  1. PREDNISOLONE. [Suspect]
     Active Substance: PREDNISOLONE
     Indication: PRODUCT USED FOR UNKNOWN INDICATION
     Dosage: 10 MG, QD
     Route: 048
     Dates: start: 20171016, end: 20171106
  2. COCARL [Concomitant]
     Active Substance: ACETAMINOPHEN
     Dosage: 800 MG, QD
     Route: 048
     Dates: end: 20171106
  3. EDIROL [Concomitant]
     Active Substance: ELDECALCITOL
     Dosage: 0.75 MUG, QD
     Route: 048
     Dates: end: 20171106
  4. LUNESTA [Concomitant]
     Active Substance: ESZOPICLONE
     Dosage: 2 MG, QD
     Route: 048
     Dates: end: 20171106
  5. MAGNESIUM OXIDE. [Concomitant]
     Active Substance: MAGNESIUM OXIDE
     Dosage: UNK
     Route: 048
  6. RANMARK [Suspect]
     Active Substance: DENOSUMAB
     Indication: METASTASES TO BONE
     Dosage: 120 MG, Q4WK
     Route: 058
     Dates: start: 20151104, end: 20171016
  7. ZYTIGA [Concomitant]
     Active Substance: ABIRATERONE ACETATE
     Dosage: 1000 MG, QD
     Route: 065
     Dates: start: 20171016, end: 20171106
  8. SENNOSIDE [Concomitant]
     Active Substance: SENNOSIDES
     Dosage: UNK
     Route: 048
  9. LEUPRORELIN ACETATE [Concomitant]
     Active Substance: LEUPROLIDE ACETATE
     Dosage: UNK
     Route: 058
     Dates: start: 20170814, end: 201710
  10. LANSOPRAZOLE. [Concomitant]
     Active Substance: LANSOPRAZOLE
     Dosage: 15 MG, QD
     Route: 048
     Dates: end: 20171106

REACTIONS (5)
  - Cellulitis [Recovering/Resolving]
  - Osteonecrosis of jaw [Recovering/Resolving]
  - Gas gangrene [Recovering/Resolving]
  - Sepsis [Recovering/Resolving]
  - Fasciitis [Recovering/Resolving]

NARRATIVE: CASE EVENT DATE: 20171019
